FAERS Safety Report 19257982 (Version 1)
Quarter: 2021Q2

REPORT INFORMATION
  Report Type: Spontaneous
  Country: US (occurrence: US)
  Receive Date: 20210514
  Receipt Date: 20210514
  Transmission Date: 20210717
  Serious: Yes (Hospitalization)
  Sender: FDA-Public Use
  Company Number: US-LUPIN PHARMACEUTICALS INC.-2021-07083

PATIENT
  Age: 43 Year
  Sex: Female

DRUGS (5)
  1. BUPRENORPHINE. [Suspect]
     Active Substance: BUPRENORPHINE
     Indication: AGITATION
     Dosage: 1.2 MILLIGRAM (OVER 3 H)
     Route: 042
  2. NALOXONE [Concomitant]
     Active Substance: NALOXONE
     Indication: PRODUCT USED FOR UNKNOWN INDICATION
     Dosage: 4 MILLIGRAM (RECEIVED 24MG OF NALOXONE; 1 + 5 ADDITIONAL CARTRIDGES WITHOUT A PAUSE)
     Route: 045
  3. HALOPERIDOL. [Suspect]
     Active Substance: HALOPERIDOL
     Indication: AGITATION
     Dosage: 10 MILLIGRAM (OVER 3 H)
     Route: 065
  4. LORAZEPAM. [Suspect]
     Active Substance: LORAZEPAM
     Indication: AGITATION
     Dosage: 10 MILLIGRAM (OVER 3 H)
     Route: 065
  5. DIPHENHYDRAMINE. [Suspect]
     Active Substance: DIPHENHYDRAMINE
     Indication: AGITATION
     Dosage: 50 MILLIGRAM (OVER 3 H)
     Route: 065

REACTIONS (1)
  - Drug ineffective [Unknown]
